FAERS Safety Report 7475629-7 (Version None)
Quarter: 2011Q2

REPORT INFORMATION
  Report Type: 
  Country: None (occurrence: None)
  Receive Date: 20110504
  Receipt Date: 20110210
  Transmission Date: 20111010
  Serious: Yes (Hospitalization, Disabling, Other)
  Sender: FDA-Public Use
  Company Number: 814826

PATIENT
  Age: 52 Year
  Sex: Male

DRUGS (8)
  1. METFORMIN HCL [Concomitant]
  2. JANUVIA [Concomitant]
  3. ASPIRIN [Concomitant]
  4. GEMCITABINE HYDROCHLORIDE [Suspect]
     Indication: PANCREATIC CARCINOMA
     Dosage: 2000 MG MILLIGRAMS, 2 GRAMS, 2 GRAMS
     Route: 042
     Dates: start: 20100907
  5. GEMCITABINE HYDROCHLORIDE [Suspect]
     Indication: PANCREATIC CARCINOMA
     Dosage: 2000 MG MILLIGRAMS, 2 GRAMS, 2 GRAMS
     Route: 042
     Dates: start: 20101223, end: 20110113
  6. GEMCITABINE HYDROCHLORIDE [Suspect]
     Indication: PANCREATIC CARCINOMA
     Dosage: 2000 MG MILLIGRAMS, 2 GRAMS, 2 GRAMS
     Route: 042
     Dates: start: 20101223, end: 20110113
  7. FRACTAL [Concomitant]
  8. GLYBURIDE [Concomitant]

REACTIONS (5)
  - ARTERIAL OCCLUSIVE DISEASE [None]
  - EXTREMITY NECROSIS [None]
  - FEMORAL ARTERY OCCLUSION [None]
  - DEVICE OCCLUSION [None]
  - CYANOSIS [None]
